FAERS Safety Report 5572787-6 (Version None)
Quarter: 2007Q4

REPORT INFORMATION
  Report Type: 
  Country: None (occurrence: None)
  Receive Date: 20071223
  Receipt Date: 20071213
  Transmission Date: 20080405
  Serious: Yes (Hospitalization, Other)
  Sender: FDA-Public Use
  Company Number: PHBS2007JP20560

PATIENT
  Age: 44 Year
  Sex: Female

DRUGS (5)
  1. TEGRETOL [Suspect]
     Indication: TONIC CONVULSION
     Route: 048
  2. TEGRETOL [Suspect]
     Dosage: 800 MG/DAY
     Route: 048
  3. VALPROATE SODIUM [Suspect]
     Indication: TONIC CONVULSION
     Dosage: 1320 MG/DAY
  4. CLONAZEPAM [Suspect]
     Indication: TONIC CONVULSION
     Dosage: 1 MG/DAY
  5. CLOBAZAM [Suspect]
     Indication: TONIC CONVULSION
     Dosage: 20 MG/DAY

REACTIONS (4)
  - ASTERIXIS [None]
  - FALL [None]
  - MUSCULAR WEAKNESS [None]
  - SPINAL COMPRESSION FRACTURE [None]
